FAERS Safety Report 5484751-6 (Version None)
Quarter: 2007Q4

REPORT INFORMATION
  Report Type: 
  Country: None (occurrence: None)
  Receive Date: 20071012
  Receipt Date: 20071002
  Transmission Date: 20080405
  Serious: Yes (Hospitalization)
  Sender: FDA-Public Use
  Company Number: IE-PFIZER INC-2007083512

PATIENT
  Sex: Female

DRUGS (10)
  1. LUSTRAL [Suspect]
     Route: 048
  2. NU-SEALS [Suspect]
     Route: 048
  3. CLEXANE [Suspect]
     Route: 058
  4. PLAVIX [Concomitant]
  5. GALFER [Concomitant]
  6. LASIX [Concomitant]
     Route: 048
  7. ZOTON [Concomitant]
     Route: 048
  8. MIRTAZAPINE [Concomitant]
  9. LIPITOR [Concomitant]
  10. CARDICOR [Concomitant]

REACTIONS (3)
  - EPISTAXIS [None]
  - HAEMATURIA [None]
  - INJECTION SITE BRUISING [None]
